FAERS Safety Report 5208412-3 (Version None)
Quarter: 2007Q1

REPORT INFORMATION
  Report Type: 
  Country: None (occurrence: None)
  Receive Date: 20070115
  Receipt Date: 20070108
  Transmission Date: 20070707
  Serious: Yes (Hospitalization)
  Sender: FDA-Public Use
  Company Number: US-SHR-US-2006-002225

PATIENT
  Age: 23 Month
  Sex: Female
  Weight: 7.71 kg

DRUGS (3)
  1. MAGNEVIST [Suspect]
     Dosage: 1.5 ML, 1 DOSE
     Route: 042
     Dates: start: 20060206, end: 20060206
  2. SYNTHROID [Concomitant]
     Indication: HYPOTHYROIDISM
  3. ANAESTHETICS [Concomitant]

REACTIONS (1)
  - RESPIRATORY DISTRESS [None]
